FAERS Safety Report 11918735 (Version 1)
Quarter: 2016Q1

REPORT INFORMATION
  Report Type: Spontaneous
  Country: US (occurrence: US)
  Receive Date: 20160115
  Receipt Date: 20160115
  Transmission Date: 20160526
  Serious: No
  Sender: FDA-Public Use
  Company Number: US-JNJFOC-20151222145

PATIENT
  Age: 86 Year
  Weight: 61.69 kg

DRUGS (2)
  1. IMODIUM MULTI-SYMPTOM RELIEF [Suspect]
     Active Substance: DIMETHICONE\LOPERAMIDE HYDROCHLORIDE
     Route: 048
  2. IMODIUM MULTI-SYMPTOM RELIEF [Suspect]
     Active Substance: DIMETHICONE\LOPERAMIDE HYDROCHLORIDE
     Indication: DIARRHOEA
     Dosage: 1/2 - 1 CAPLET, 1-2 X DAY
     Route: 048
     Dates: end: 20151223

REACTIONS (5)
  - Constipation [Unknown]
  - Incorrect dose administered [Unknown]
  - Muscle spasms [Unknown]
  - Infrequent bowel movements [Unknown]
  - Wrong technique in product usage process [Unknown]
